FAERS Safety Report 19095785 (Version 2)
Quarter: 2022Q3

REPORT INFORMATION
  Report Type: Spontaneous
  Country: US (occurrence: US)
  Receive Date: 20210406
  Receipt Date: 20220930
  Transmission Date: 20221027
  Serious: Yes (Other)
  Sender: FDA-Public Use
  Company Number: US-SA-SAC20210402001172

PATIENT
  Age: 72 Year
  Sex: Male

DRUGS (1)
  1. ZANTAC [Suspect]
     Active Substance: RANITIDINE HYDROCHLORIDE
     Indication: Dyspepsia
     Dosage: 150 MG, FREQ:OTHER
     Dates: start: 201210, end: 201910

REACTIONS (3)
  - Bladder cancer stage IV [Not Recovered/Not Resolved]
  - Hepatic cancer stage IV [Not Recovered/Not Resolved]
  - Gallbladder cancer stage IV [Not Recovered/Not Resolved]

NARRATIVE: CASE EVENT DATE: 20191101
